FAERS Safety Report 8609623-7 (Version None)
Quarter: 2012Q3

REPORT INFORMATION
  Report Type: 
  Country: None (occurrence: None)
  Receive Date: 20120423
  Receipt Date: 20090213
  Transmission Date: 20120928
  Serious: Yes (Other)
  Sender: FDA-Public Use
  Company Number: PHEH2008US11061

PATIENT
  Sex: Female

DRUGS (1)
  1. FEMARA [Suspect]
     Dosage: 2.5 MG
     Dates: start: 20061101

REACTIONS (3)
  - ARTHRITIS [None]
  - HOT FLUSH [None]
  - ARTHRALGIA [None]
